FAERS Safety Report 8956068 (Version 2)
Quarter: 2012Q4

REPORT INFORMATION
  Report Type: 
  Country: US (occurrence: US)
  Receive Date: 20121210
  Receipt Date: 20121214
  Transmission Date: 20130627
  Serious: Yes (Hospitalization, Disabling, Other)
  Sender: FDA-Public Use
  Company Number: US-009507513-1006USA00661

PATIENT

DRUGS (8)
  1. FOSAMAX [Suspect]
     Indication: OSTEOPENIA
     Dosage: 10 mg, qd
     Route: 048
     Dates: start: 19980210, end: 20010521
  2. FOSAMAX [Suspect]
     Indication: OSTEOPOROSIS
     Dosage: 70 mg, QW
     Route: 048
     Dates: start: 20010624, end: 20080722
  3. CALCIUM (UNSPECIFIED) (+) VITAMIN D (UNSPECIFIED) [Concomitant]
     Route: 048
     Dates: start: 1998, end: 2008
  4. ZOCOR [Concomitant]
     Indication: BLOOD CHOLESTEROL INCREASED
     Route: 048
     Dates: start: 1990
  5. LEVOTIROXINA S.O [Concomitant]
     Indication: HYPOTHYROIDISM
     Route: 048
     Dates: start: 1980
  6. PROZAC [Concomitant]
     Indication: DEPRESSION
     Route: 048
     Dates: start: 1990
  7. TOFRANIL [Concomitant]
     Indication: DEPRESSION
     Route: 048
     Dates: start: 1990
  8. COUMADIN [Concomitant]
     Indication: CEREBROVASCULAR ACCIDENT
     Route: 048
     Dates: start: 1995

REACTIONS (74)
  - Multiple fractures [Unknown]
  - Intramedullary rod insertion [Not Recovered/Not Resolved]
  - Osteoporosis [Unknown]
  - Low turnover osteopathy [Unknown]
  - Femur fracture [Unknown]
  - Medical device removal [Unknown]
  - Tonsillectomy [Unknown]
  - Femur fracture [Unknown]
  - Chest pain [Unknown]
  - Vision blurred [Unknown]
  - Renal failure acute [Unknown]
  - Encephalomalacia [Unknown]
  - Myocardial infarction [Unknown]
  - Pneumonia [Unknown]
  - Transient ischaemic attack [Unknown]
  - Anaemia of chronic disease [Unknown]
  - Femur fracture [Unknown]
  - Femur fracture [Unknown]
  - Back pain [Unknown]
  - Anaemia [Unknown]
  - Vitamin D deficiency [Unknown]
  - Chest pain [Unknown]
  - Calcium deficiency [Unknown]
  - Urinary tract infection [Unknown]
  - White blood cell count decreased [Unknown]
  - Proctitis [Unknown]
  - Rectal ulcer [Unknown]
  - Rectal prolapse [Unknown]
  - Haemorrhoids [Unknown]
  - Colitis microscopic [Unknown]
  - Skin lesion [Unknown]
  - Non-cardiac chest pain [Unknown]
  - Weight increased [Unknown]
  - Fracture delayed union [Unknown]
  - Fracture delayed union [Unknown]
  - Weight increased [Unknown]
  - Fracture delayed union [Unknown]
  - Night sweats [Unknown]
  - Hyperhidrosis [Unknown]
  - Sciatica [Unknown]
  - Fall [Unknown]
  - Breast discharge [Unknown]
  - Fractured coccyx [Unknown]
  - Arthritis [Unknown]
  - Intervertebral disc protrusion [Unknown]
  - Anaemia postoperative [Unknown]
  - Mood altered [Unknown]
  - Ovarian mass [Unknown]
  - Dyspareunia [Unknown]
  - Dry mouth [Not Recovered/Not Resolved]
  - Tooth fracture [Unknown]
  - Dental caries [Unknown]
  - Hereditary non-polyposis colorectal cancer syndrome [Unknown]
  - Depression [Unknown]
  - Epistaxis [Unknown]
  - Large intestine polyp [Unknown]
  - Fall [Unknown]
  - Foot fracture [Unknown]
  - Diverticulum [Unknown]
  - Hiatus hernia [Unknown]
  - Dental caries [Unknown]
  - Rubber sensitivity [Unknown]
  - Myositis [Unknown]
  - Compartment syndrome [Unknown]
  - Muscle spasms [Unknown]
  - Adverse drug reaction [Unknown]
  - Dyspepsia [Not Recovered/Not Resolved]
  - Arthralgia [Unknown]
  - Fatigue [Unknown]
  - Headache [Unknown]
  - Pain in extremity [Unknown]
  - Constipation [Unknown]
  - Myalgia [Unknown]
  - Gastritis [Not Recovered/Not Resolved]
